FAERS Safety Report 6395818-2 (Version None)
Quarter: 2009Q4

REPORT INFORMATION
  Report Type: 
  Country: None (occurrence: None)
  Receive Date: 20091009
  Receipt Date: 20090710
  Transmission Date: 20100525
  Serious: No
  Sender: FDA-Public Use
  Company Number: A0792516A

PATIENT
  Age: 51 Year
  Sex: Female

DRUGS (12)
  1. TYKERB [Suspect]
     Indication: BREAST CANCER
     Dosage: 4TAB PER DAY
     Route: 048
     Dates: start: 20090601
  2. XELODA [Concomitant]
  3. PERCOCET [Concomitant]
  4. OXYCODONE [Concomitant]
  5. METHADONE HYDROCHLORIDE [Concomitant]
  6. GABAPENTIN [Concomitant]
  7. COMPAZINE [Concomitant]
  8. PROVENTIL-HFA [Concomitant]
  9. LISINOPRIL [Concomitant]
  10. REGLAN [Concomitant]
  11. VYTORIN [Concomitant]
  12. DIPHENOXYLATE HCL + ATROPINE SULFATE [Concomitant]

REACTIONS (2)
  - DRUG ADMINISTRATION ERROR [None]
  - FATIGUE [None]
